FAERS Safety Report 18293246 (Version 1)
Quarter: 2020Q3

REPORT INFORMATION
  Report Type: Spontaneous
  Country: US (occurrence: US)
  Receive Date: 20200921
  Receipt Date: 20200921
  Transmission Date: 20201103
  Serious: Yes (Hospitalization)
  Sender: FDA-Public Use
  Company Number: None

PATIENT
  Age: 72 Year
  Sex: Male

DRUGS (8)
  1. ALBUTEROL. [Concomitant]
     Active Substance: ALBUTEROL
  2. NYSTATIN. [Concomitant]
     Active Substance: NYSTATIN
  3. POLYSPORIN [Concomitant]
     Active Substance: BACITRACIN ZINC\POLYMYXIN B SULFATE
  4. HYDROCO/APAP [Concomitant]
     Active Substance: ACETAMINOPHEN\HYDROCODONE
  5. METRONIDAZOL [Concomitant]
     Active Substance: METRONIDAZOLE
  6. HUMIRA [Suspect]
     Active Substance: ADALIMUMAB
     Indication: CROHN^S DISEASE
     Dosage: ?          OTHER FREQUENCY:ONCE A WEEK;?
     Route: 058
     Dates: start: 20190829
  7. LEVOFLOXACIN. [Concomitant]
     Active Substance: LEVOFLOXACIN
  8. AMOX/K CLAV [Concomitant]
     Active Substance: AMOXICILLIN\CLAVULANATE POTASSIUM

REACTIONS (2)
  - Sleep apnoea syndrome [None]
  - Headache [None]

NARRATIVE: CASE EVENT DATE: 20200917
